FAERS Safety Report 7913529-6 (Version None)
Quarter: 2011Q4

REPORT INFORMATION
  Report Type: 
  Country: None (occurrence: None)
  Receive Date: 20111110
  Receipt Date: 20111025
  Transmission Date: 20120403
  Serious: Yes (Other)
  Sender: FDA-Public Use
  Company Number: NSR_00304_2011

PATIENT
  Sex: Female
  Weight: 104.3273 kg

DRUGS (9)
  1. SIMVASTATIN [Concomitant]
  2. LIPITOR [Concomitant]
  3. ATENOLOL [Concomitant]
  4. LOZOL [Concomitant]
  5. AMLODIPINE [Concomitant]
  6. GLIPIZIDE [Concomitant]
  7. ATACAND [Concomitant]
  8. ALLOPURINOL [Concomitant]
  9. ALLOPURINOL [Suspect]
     Indication: BLOOD URIC ACID INCREASED
     Dosage: (300 MG QD ORAL)
     Route: 048

REACTIONS (8)
  - VASCULITIS [None]
  - RASH ERYTHEMATOUS [None]
  - GASTRITIS [None]
  - DIARRHOEA [None]
  - IRON DEFICIENCY [None]
  - STEVENS-JOHNSON SYNDROME [None]
  - HEPATIC ENZYME INCREASED [None]
  - FLATULENCE [None]
